FAERS Safety Report 6779972-6 (Version None)
Quarter: 2010Q2

REPORT INFORMATION
  Report Type: 
  Country: None (occurrence: None)
  Receive Date: 20100618
  Receipt Date: 20100611
  Transmission Date: 20101027
  Serious: Yes (Other)
  Sender: FDA-Public Use
  Company Number: US-JNJFOC-20100502964

PATIENT
  Sex: Female

DRUGS (2)
  1. CONCENTRATED TYLENOL INFANT DROPS [Suspect]
  2. CONCENTRATED TYLENOL INFANT DROPS [Suspect]
     Indication: PYREXIA

REACTIONS (7)
  - DRUG INEFFECTIVE [None]
  - DYSPNOEA [None]
  - NASAL CONGESTION [None]
  - PRODUCT QUALITY ISSUE [None]
  - PYREXIA [None]
  - RESPIRATORY SYNCYTIAL VIRUS INFECTION [None]
  - RHINORRHOEA [None]
